FAERS Safety Report 19408442 (Version 1)
Quarter: 2021Q2

REPORT INFORMATION
  Report Type: Report from Study
  Country: US (occurrence: US)
  Receive Date: 20210612
  Receipt Date: 20210612
  Transmission Date: 20210717
  Serious: No
  Sender: FDA-Public Use
  Company Number: NVSC2021US125490

PATIENT
  Sex: Male

DRUGS (1)
  1. COSENTYX [Suspect]
     Active Substance: SECUKINUMAB
     Indication: PRODUCT USED FOR UNKNOWN INDICATION
     Dosage: UNK
     Route: 065

REACTIONS (7)
  - Burning sensation [Unknown]
  - Arthralgia [Unknown]
  - Peripheral vascular disorder [Unknown]
  - Joint injury [Unknown]
  - Chondropathy [Unknown]
  - Paraesthesia [Unknown]
  - Limb injury [Unknown]
